FAERS Safety Report 10275849 (Version 1)
Quarter: 2014Q3

REPORT INFORMATION
  Report Type: Spontaneous
  Country: NL (occurrence: NL)
  Receive Date: 20140703
  Receipt Date: 20140703
  Transmission Date: 20150326
  Serious: Yes (Other)
  Sender: FDA-Public Use
  Company Number: NL-AMGEN-NLDSP2014048688

PATIENT
  Age: 63 Year
  Sex: Female

DRUGS (7)
  1. EXEMESTANE. [Concomitant]
     Active Substance: EXEMESTANE
     Dosage: 25 MG, QD
  2. OMEPRAZOLE. [Concomitant]
     Active Substance: OMEPRAZOLE
     Dosage: 20 MG, QD
  3. AFINITOR [Concomitant]
     Active Substance: EVEROLIMUS
     Dosage: 5 MG, UNK
  4. FENTANYL. [Concomitant]
     Active Substance: FENTANYL
     Dosage: 25 MG, UNK
  5. CAD [Concomitant]
     Dosage: UNK UNK, QD
  6. XGEVA [Suspect]
     Active Substance: DENOSUMAB
     Indication: METASTASES TO BONE
     Dosage: 120 MG, QMO
     Route: 058
     Dates: start: 20130213, end: 20140527
  7. OXYCODON [Concomitant]
     Active Substance: OXYCODONE
     Dosage: 5 MG, AS NECESSARY

REACTIONS (4)
  - Local swelling [Not Recovered/Not Resolved]
  - Tooth disorder [Unknown]
  - Pain in jaw [Not Recovered/Not Resolved]
  - Toothache [Unknown]

NARRATIVE: CASE EVENT DATE: 20140325
